FAERS Safety Report 8308746-X (Version None)
Quarter: 2012Q1

REPORT INFORMATION
  Report Type: 
  Country: None (occurrence: None)
  Receive Date: 20120327
  Receipt Date: 20110419
  Transmission Date: 20120608
  Serious: Yes (Other)
  Sender: FDA-Public Use
  Company Number: PHHY2011US18918

PATIENT
  Age: 54 Year
  Sex: Female
  Weight: 60.5 kg

DRUGS (5)
  1. TRAMADOL HCL [Concomitant]
  2. SLOW-FE (FERROUS SULFATE) [Concomitant]
  3. ALLOPURINOL [Concomitant]
  4. GLEEVEC [Suspect]
     Indication: CHRONIC MYELOID LEUKAEMIA
     Dosage: 400 MG, DAILY, ORAL
     Route: 048
     Dates: start: 20100510, end: 20101227
  5. MULTIVITAMINS (ASCORBIC ACID, ERGOCALCIFEROL, FOLIC ACID, NICOTINAMIDE [Concomitant]

REACTIONS (5)
  - HEPATOTOXICITY [None]
  - CONJUNCTIVAL HAEMORRHAGE [None]
  - HEPATIC STEATOSIS [None]
  - HEPATIC ENZYME INCREASED [None]
  - HEPATITIS ACUTE [None]
